FAERS Safety Report 7621298 (Version 4)
Quarter: 2013Q4

REPORT INFORMATION
  Report Type: Report from Study
  Country: MX (occurrence: MX)
  Receive Date: 20101008
  Receipt Date: 20131212
  Transmission Date: 20140711
  Serious: Yes (Hospitalization, Other)
  Sender: FDA-Public Use
  Company Number: PHHY2010MX63951

PATIENT
  Age: 66 Year
  Sex: Female

DRUGS (1)
  1. CO-DIOVAN [Suspect]
     Indication: HYPERTENSION
     Dosage: 1 DF, (320 MG VALS AND 12.5 MG HYDR) DAILY
     Route: 048
     Dates: start: 201012

REACTIONS (11)
  - Infection [Recovering/Resolving]
  - Necrosis [Recovering/Resolving]
  - Graft complication [Recovering/Resolving]
  - Skin burning sensation [Recovering/Resolving]
  - General physical health deterioration [Unknown]
  - Disease complication [Unknown]
  - Lower limb fracture [Not Recovered/Not Resolved]
  - Joint swelling [Not Recovered/Not Resolved]
  - Arthralgia [Not Recovered/Not Resolved]
  - Fall [Not Recovered/Not Resolved]
  - Depression [Not Recovered/Not Resolved]
